FAERS Safety Report 18213569 (Version 1)
Quarter: 2020Q3

REPORT INFORMATION
  Report Type: Spontaneous
  Country: US (occurrence: US)
  Receive Date: 20200831
  Receipt Date: 20200831
  Transmission Date: 20201103
  Serious: No
  Sender: FDA-Public Use
  Company Number: None

PATIENT
  Age: 61 Year
  Sex: Female
  Weight: 92.53 kg

DRUGS (5)
  1. EXEMESTANE 25 MG TABLET [Concomitant]
     Active Substance: EXEMESTANE
  2. IBRANCE [Suspect]
     Active Substance: PALBOCICLIB
     Indication: BREAST CANCER
     Dosage: ?          OTHER FREQUENCY:3 WEEKS ON;?
     Route: 048
     Dates: start: 20181214, end: 20200831
  3. XGEVA [Concomitant]
     Active Substance: DENOSUMAB
  4. XARELTO [Concomitant]
     Active Substance: RIVAROXABAN
  5. LETROZOLE. [Concomitant]
     Active Substance: LETROZOLE

REACTIONS (1)
  - Disease progression [None]

NARRATIVE: CASE EVENT DATE: 20200831
